FAERS Safety Report 23635110 (Version 1)
Quarter: 2024Q1

REPORT INFORMATION
  Report Type: Spontaneous
  Country: CA (occurrence: CA)
  Receive Date: 20240315
  Receipt Date: 20240315
  Transmission Date: 20240410
  Serious: Yes (Other)
  Sender: FDA-Public Use
  Company Number: CA-HIKMA PHARMACEUTICALS USA INC.-CA-H14001-24-02020

PATIENT
  Age: 40 Year
  Sex: Female

DRUGS (24)
  1. ACETAMINOPHEN AND CODEINE [Suspect]
     Active Substance: ACETAMINOPHEN\CODEINE PHOSPHATE
     Indication: Product used for unknown indication
     Dosage: UNKNOWN
     Route: 065
  2. ACETAMINOPHEN\CODEINE PHOSPHATE [Suspect]
     Active Substance: ACETAMINOPHEN\CODEINE PHOSPHATE
     Indication: Migraine
     Dosage: UNKNOWN
     Route: 065
  3. AIMOVIG [Suspect]
     Active Substance: ERENUMAB-AOOE
     Indication: Migraine
     Dosage: UNKNOWN
     Route: 065
  4. AIMOVIG [Suspect]
     Active Substance: ERENUMAB-AOOE
     Indication: Migraine
     Dosage: UNKNOWN
     Route: 065
  5. CYCLOBENZAPRINE [Suspect]
     Active Substance: CYCLOBENZAPRINE
     Indication: Product used for unknown indication
     Dosage: UNKNOWN
     Route: 065
  6. BOTULINUM TOXIN TYPE A [Suspect]
     Active Substance: BOTULINUM TOXIN TYPE A
     Indication: Migraine
     Dosage: UNKNOWN
     Route: 065
  7. CYCLOBENZAPRINE HYDROCHLORIDE [Suspect]
     Active Substance: CYCLOBENZAPRINE HYDROCHLORIDE
     Indication: Product used for unknown indication
     Dosage: UNKNOWN
     Route: 065
  8. CYCLOBENZAPRINE HYDROCHLORIDE\DICLOFENAC POTASSIUM [Suspect]
     Active Substance: CYCLOBENZAPRINE HYDROCHLORIDE\DICLOFENAC POTASSIUM
     Indication: Product used for unknown indication
     Dosage: UNKNOWN
  9. ELAVIL [Suspect]
     Active Substance: AMITRIPTYLINE HYDROCHLORIDE
     Indication: Migraine
     Dosage: UNKNOWN
     Route: 065
  10. ERGOCALCIFEROL [Suspect]
     Active Substance: ERGOCALCIFEROL
     Indication: Migraine
     Dosage: UNKNOWN
     Route: 065
  11. GRAVOL [Suspect]
     Active Substance: DIMENHYDRINATE
     Indication: Migraine
     Dosage: UNKNOWN
     Route: 065
  12. HEXACHLOROPHENE [Suspect]
     Active Substance: HEXACHLOROPHENE
     Indication: Migraine
     Dosage: UNKNOWN
     Route: 065
  13. LIDOCAINE HYDROCHLORIDE [Suspect]
     Active Substance: LIDOCAINE HYDROCHLORIDE
     Indication: Migraine
     Dosage: UNKNOWN
     Route: 065
  14. MEFENAMIC ACID [Suspect]
     Active Substance: MEFENAMIC ACID
     Indication: Migraine
     Dosage: UNKNOWN
     Route: 065
  15. MORPHINE SULFATE [Suspect]
     Active Substance: MORPHINE SULFATE
     Indication: Migraine
     Dosage: UNKNOWN
     Route: 065
  16. NEURONTIN [Suspect]
     Active Substance: GABAPENTIN
     Indication: Migraine
     Dosage: UNKNOWN
     Route: 065
  17. NORTRIPTYLINE [Suspect]
     Active Substance: NORTRIPTYLINE
     Indication: Migraine
     Dosage: 1 DOSAGE FORM, QD
     Route: 065
  18. PROPRANOLOL [Suspect]
     Active Substance: PROPRANOLOL HYDROCHLORIDE
     Indication: Migraine
     Dosage: 1 DOSAGE FORM
     Route: 065
  19. PROPRANOLOL [Suspect]
     Active Substance: PROPRANOLOL HYDROCHLORIDE
     Dosage: 1 DOSAGE FORM
     Route: 058
  20. PROPRANOLOL [Suspect]
     Active Substance: PROPRANOLOL HYDROCHLORIDE
     Dosage: UNKNOWN
     Route: 065
  21. PROPRANOLOL [Suspect]
     Active Substance: PROPRANOLOL HYDROCHLORIDE
     Indication: Migraine
     Dosage: UNKNOWN
     Route: 065
  22. PYRIDOXINE\TRYPTOPHAN [Suspect]
     Active Substance: PYRIDOXINE\TRYPTOPHAN
     Indication: Migraine
     Dosage: UNKNOWN
     Route: 065
  23. TOPIRAMATE [Suspect]
     Active Substance: TOPIRAMATE
     Indication: Migraine
     Dosage: 100 MILLIGRAM, Q12H
     Route: 048
  24. ZOLMITRIPTAN [Suspect]
     Active Substance: ZOLMITRIPTAN
     Indication: Migraine
     Dosage: 1 DOSAGE FORM
     Route: 058

REACTIONS (20)
  - Discomfort [Recovering/Resolving]
  - Disturbance in attention [Recovering/Resolving]
  - Fatigue [Recovering/Resolving]
  - Mastoiditis [Recovering/Resolving]
  - Migraine [Recovering/Resolving]
  - Myalgia [Recovering/Resolving]
  - Otitis media [Recovering/Resolving]
  - Paranasal cyst [Recovering/Resolving]
  - Stress [Recovering/Resolving]
  - Vascular malformation [Recovering/Resolving]
  - Nausea [Unknown]
  - Headache [Recovering/Resolving]
  - Dizziness [Recovering/Resolving]
  - Hypotension [Recovering/Resolving]
  - Tremor [Recovering/Resolving]
  - Drug intolerance [Recovering/Resolving]
  - Product use in unapproved indication [Recovering/Resolving]
  - Therapeutic response decreased [Unknown]
  - Therapy partial responder [Recovering/Resolving]
  - Drug ineffective [Recovering/Resolving]
